FAERS Safety Report 18550141 (Version 7)
Quarter: 2021Q1

REPORT INFORMATION
  Report Type: Spontaneous
  Country: CA (occurrence: CA)
  Receive Date: 20201126
  Receipt Date: 20210317
  Transmission Date: 20210419
  Serious: Yes (Hospitalization, Other)
  Sender: FDA-Public Use
  Company Number: CA-PFIZER INC-2020456778

PATIENT
  Age: 78 Year
  Sex: Male
  Weight: 77 kg

DRUGS (6)
  1. INLYTA [Suspect]
     Active Substance: AXITINIB
     Dosage: 5 MG, 2X/DAY
     Route: 048
     Dates: start: 20210114
  2. KEYTRUDA [Concomitant]
     Active Substance: PEMBROLIZUMAB
     Dosage: UNK
  3. METOCLOPRAMIDE. [Concomitant]
     Active Substance: METOCLOPRAMIDE
     Indication: NAUSEA
     Dosage: 10 MG, 4X/DAY AS NEEDED
     Route: 048
  4. LOPERAMIDE [Concomitant]
     Active Substance: LOPERAMIDE
     Indication: DIARRHOEA
     Dosage: 2 MG, AS NEEDED
     Route: 048
  5. ENSURE [NUTRIENTS NOS] [Concomitant]
     Dosage: UNK
  6. METOCLOPRAMIDE. [Concomitant]
     Active Substance: METOCLOPRAMIDE
     Indication: VOMITING

REACTIONS (11)
  - Delirium [Unknown]
  - Dementia [Unknown]
  - Balance disorder [Unknown]
  - Anxiety [Unknown]
  - Malaise [Unknown]
  - Arthralgia [Not Recovered/Not Resolved]
  - Eating disorder [Unknown]
  - Muscle strain [Unknown]
  - Dysphagia [Unknown]
  - Off label use [Unknown]
  - Back pain [Not Recovered/Not Resolved]

NARRATIVE: CASE EVENT DATE: 202101
